FAERS Safety Report 17397113 (Version 1)
Quarter: 2020Q1

REPORT INFORMATION
  Report Type: Spontaneous
  Country: US (occurrence: US)
  Receive Date: 20200207
  Receipt Date: 20200207
  Transmission Date: 20200409
  Serious: No
  Sender: FDA-Public Use
  Company Number: None

PATIENT
  Age: 42 Year
  Sex: Female
  Weight: 85.5 kg

DRUGS (1)
  1. METHYLPHENIDATE HYDROCHLORIDE ER 27 MG [Suspect]
     Active Substance: METHYLPHENIDATE HYDROCHLORIDE
     Indication: ATTENTION DEFICIT/HYPERACTIVITY DISORDER
     Dosage: ?          QUANTITY:30 TABLET(S);?
     Route: 048
     Dates: start: 20200206, end: 20200207

REACTIONS (22)
  - Irritability [None]
  - Aphasia [None]
  - Muscle twitching [None]
  - Loss of consciousness [None]
  - Hot flush [None]
  - Abdominal pain upper [None]
  - Fear [None]
  - Depressed level of consciousness [None]
  - Palpitations [None]
  - Dizziness [None]
  - Paraesthesia [None]
  - Tachyphrenia [None]
  - Mood swings [None]
  - Headache [None]
  - Suicidal ideation [None]
  - Product substitution issue [None]
  - Tremor [None]
  - Dry mouth [None]
  - Nausea [None]
  - Impaired work ability [None]
  - Lethargy [None]
  - Personality change [None]

NARRATIVE: CASE EVENT DATE: 20200206
